FAERS Safety Report 19660470 (Version 1)
Quarter: 2021Q3

REPORT INFORMATION
  Report Type: Spontaneous
  Country: US (occurrence: US)
  Receive Date: 20210804
  Receipt Date: 20210804
  Transmission Date: 20211014
  Serious: Yes (Other)
  Sender: FDA-Public Use
  Company Number: None

PATIENT
  Age: 58 Year
  Sex: Male
  Weight: 94 kg

DRUGS (1)
  1. HEPARIN SODIUM INJECTION 10000ML 10ML [Suspect]
     Active Substance: HEPARIN SODIUM
     Indication: CATHETERISATION CARDIAC
     Dates: start: 20210803, end: 20210803

REACTIONS (1)
  - Product measured potency issue [None]

NARRATIVE: CASE EVENT DATE: 20210803
